FAERS Safety Report 20188624 (Version 1)
Quarter: 2021Q4

REPORT INFORMATION
  Report Type: Spontaneous
  Country: US (occurrence: US)
  Receive Date: 20211215
  Receipt Date: 20211215
  Transmission Date: 20220303
  Serious: Yes (Other)
  Sender: FDA-Public Use
  Company Number: US-JNJFOC-20211217279

PATIENT
  Sex: Female

DRUGS (1)
  1. CHILDRENS TYLENOL DISSOLVE PACKS, WILD BERRY FLAVOR [Suspect]
     Active Substance: ACETAMINOPHEN
     Indication: Product used for unknown indication
     Route: 065

REACTIONS (1)
  - Hallucination [Unknown]
